FAERS Safety Report 7746530-6 (Version None)
Quarter: 2011Q3

REPORT INFORMATION
  Report Type: 
  Country: None (occurrence: None)
  Receive Date: 20110913
  Receipt Date: 20110909
  Transmission Date: 20111222
  Serious: Yes (Death, Hospitalization, Other)
  Sender: FDA-Public Use
  Company Number: US-BAYER-2011-072620

PATIENT
  Age: 56 Year
  Sex: Male

DRUGS (2)
  1. SORAFENIB (RAF KINASE INHIBITOR) [Suspect]
     Indication: HEPATIC NEOPLASM MALIGNANT
     Dosage: 2 IN AM AND 2 IN PM
     Route: 048
     Dates: start: 20110810, end: 20110813
  2. SORAFENIB (RAF KINASE INHIBITOR) [Suspect]
     Dosage: 200 MG, BID

REACTIONS (9)
  - GASTROINTESTINAL HAEMORRHAGE [None]
  - HAEMATEMESIS [None]
  - NAUSEA [None]
  - DEHYDRATION [None]
  - DEATH [None]
  - PYREXIA [None]
  - CIRCULATORY COLLAPSE [None]
  - STOMATITIS [None]
  - OROPHARYNGEAL PAIN [None]
